FAERS Safety Report 14148434 (Version 2)
Quarter: 2017Q4

REPORT INFORMATION
  Report Type: Spontaneous
  Country: US (occurrence: US)
  Receive Date: 20171101
  Receipt Date: 20171103
  Transmission Date: 20180321
  Serious: Yes (Death)
  Sender: FDA-Public Use
  Company Number: PHEH2017US035323

PATIENT
  Sex: Female
  Weight: 66 kg

DRUGS (3)
  1. VOTRIENT [Suspect]
     Active Substance: PAZOPANIB HYDROCHLORIDE
     Indication: BONE NEOPLASM
     Dosage: 600 MG, QD
     Route: 048
     Dates: start: 20161013
  2. VOTRIENT [Suspect]
     Active Substance: PAZOPANIB HYDROCHLORIDE
     Indication: EWING^S SARCOMA
  3. VOTRIENT [Suspect]
     Active Substance: PAZOPANIB HYDROCHLORIDE
     Indication: RENAL NEOPLASM
     Dosage: 200-800 MG QD
     Route: 048
     Dates: start: 201610, end: 201705

REACTIONS (4)
  - Bone neoplasm [Fatal]
  - Malignant neoplasm progression [Fatal]
  - Ewing^s sarcoma [Fatal]
  - Renal neoplasm [Fatal]
